FAERS Safety Report 6186256-6 (Version None)
Quarter: 2009Q2

REPORT INFORMATION
  Report Type: 
  Country: None (occurrence: None)
  Receive Date: 20090511
  Receipt Date: 20090507
  Transmission Date: 20091009
  Serious: Yes (Life-Threatening, Hospitalization)
  Sender: FDA-Public Use
  Company Number: PHHY2009GR16833

PATIENT
  Age: 48 Year
  Sex: Male

DRUGS (1)
  1. VOLTAREN RETARD [Suspect]
     Indication: ARTHRALGIA
     Dosage: 100
     Route: 048
     Dates: start: 20090414, end: 20090414

REACTIONS (9)
  - BRAIN HYPOXIA [None]
  - BRAIN INJURY [None]
  - BRONCHOSPASM [None]
  - CARDIAC ARREST [None]
  - DYSPNOEA [None]
  - HYPERSENSITIVITY [None]
  - MULTI-ORGAN FAILURE [None]
  - RASH [None]
  - RESUSCITATION [None]
